FAERS Safety Report 4470835-8 (Version None)
Quarter: 2004Q4

REPORT INFORMATION
  Report Type: 
  Country: None (occurrence: None)
  Receive Date: 20041011
  Receipt Date: 20040519
  Transmission Date: 20050328
  Serious: Yes (Hospitalization)
  Sender: FDA-Public Use
  Company Number: FR-BRISTOL-MYERS SQUIBB COMPANY-12591095

PATIENT
  Age: 60 Year
  Sex: Male

DRUGS (2)
  1. CISPLATIN [Suspect]
     Indication: BLADDER CANCER
     Dosage: RE-INITIATED ON 17-MAR-2004
     Route: 042
     Dates: start: 20040216, end: 20040216
  2. GEMCITABINE [Suspect]
     Indication: BLADDER CANCER
     Dosage: THERAPY DATES: 16-FEB TO 01-MAR-2004; CUMULATIVE DOSE - 6000 MG RE-INITIATED ON 17-MAR-2004
     Route: 042
     Dates: start: 20040301, end: 20040301

REACTIONS (2)
  - RENAL FAILURE ACUTE [None]
  - URINARY TRACT INFECTION [None]
